FAERS Safety Report 9026408 (Version 2)
Quarter: 2013Q1

REPORT INFORMATION
  Report Type: Spontaneous
  Country: JP (occurrence: JP)
  Receive Date: 20130123
  Receipt Date: 20130321
  Transmission Date: 20140127
  Serious: Yes (Death, Hospitalization, Other)
  Sender: FDA-Public Use
  Company Number: JP-009507513-1301JPN009863

PATIENT
  Age: 69 Year
  Sex: Female

DRUGS (2)
  1. PEGINTRON [Suspect]
     Indication: HEPATITIS C
     Dosage: 100 MICROGRAM PER KILOGRAM, QW
     Route: 058
     Dates: start: 201005, end: 201102
  2. REBETOL [Suspect]
     Indication: HEPATITIS C
     Dosage: 200 MG, BID
     Route: 048
     Dates: start: 201005, end: 201102

REACTIONS (2)
  - Gastric cancer [Fatal]
  - Interstitial lung disease [Recovering/Resolving]
